FAERS Safety Report 6215692-4 (Version None)
Quarter: 2009Q2

REPORT INFORMATION
  Report Type: 
  Country: None (occurrence: None)
  Receive Date: 20090603
  Receipt Date: 20090603
  Transmission Date: 20091009
  Serious: Yes (Other)
  Sender: FDA-Public Use
  Company Number: None

PATIENT
  Sex: Female
  Weight: 90.7194 kg

DRUGS (2)
  1. PAROXETINE HCL [Suspect]
     Indication: DEPRESSION
     Dosage: 40 MG. 1 A DAY FOR SEVERAL YEARS
  2. PAXIL [Suspect]

REACTIONS (3)
  - APHASIA [None]
  - DISTURBANCE IN SOCIAL BEHAVIOUR [None]
  - IRRITABILITY [None]
